FAERS Safety Report 8176753-6 (Version None)
Quarter: 2012Q1

REPORT INFORMATION
  Report Type: 
  Country: None (occurrence: None)
  Receive Date: 20120301
  Receipt Date: 20120222
  Transmission Date: 20120608
  Serious: Yes (Other)
  Sender: FDA-Public Use
  Company Number: US-ABBOTT-12P-163-0907867-00

PATIENT
  Age: 55 Year
  Sex: Male

DRUGS (16)
  1. HUMIRA [Suspect]
     Indication: PSORIATIC ARTHROPATHY
     Dates: end: 20120110
  2. VITAMIN D [Concomitant]
     Indication: PROPHYLAXIS
  3. CALCIUM [Concomitant]
     Indication: PRODUCT USED FOR UNKNOWN INDICATION
     Dosage: DAILY
  4. ASPIRIN [Concomitant]
     Indication: PROPHYLAXIS
  5. METHOTREXATE [Concomitant]
     Indication: PRODUCT USED FOR UNKNOWN INDICATION
  6. CYMBALTA [Concomitant]
     Indication: HEADACHE
  7. FOLIC ACID [Concomitant]
     Indication: PRODUCT USED FOR UNKNOWN INDICATION
  8. TOPAMAX [Concomitant]
     Indication: HEADACHE
     Dosage: IN MORNING AND EVENING
  9. MOBIC [Concomitant]
     Indication: PAIN
     Dosage: APPROXIMATELY 10MG
  10. HUMIRA [Suspect]
     Dates: start: 20120221
  11. TOPROL-XL [Concomitant]
     Indication: ANGINA PECTORIS
  12. PLAVIX [Concomitant]
     Indication: CARDIAC DISORDER
  13. VITAMIN E [Concomitant]
     Indication: PROPHYLAXIS
  14. MULTI-VITAMINS [Concomitant]
     Indication: PROPHYLAXIS
  15. ZETIA [Concomitant]
     Indication: BLOOD CHOLESTEROL
  16. LIPITOR [Concomitant]
     Indication: BLOOD CHOLESTEROL INCREASED

REACTIONS (11)
  - PHARYNGITIS STREPTOCOCCAL [None]
  - PAIN [None]
  - PAIN IN EXTREMITY [None]
  - DYSPNOEA [None]
  - TREMOR [None]
  - DEVICE BREAKAGE [None]
  - HYPOAESTHESIA [None]
  - INTERVERTEBRAL DISC PROTRUSION [None]
  - PARAESTHESIA [None]
  - HYPERHIDROSIS [None]
  - HEADACHE [None]
